FAERS Safety Report 9286665 (Version 3)
Quarter: 2013Q4

REPORT INFORMATION
  Report Type: Report from Study
  Country: US (occurrence: US)
  Receive Date: 20130513
  Receipt Date: 20131030
  Transmission Date: 20140711
  Serious: Yes (Disabling, Other)
  Sender: FDA-Public Use
  Company Number: PHHO2013US005954

PATIENT
  Sex: Female
  Weight: 105.81 kg

DRUGS (6)
  1. GILENYA [Suspect]
     Indication: MULTIPLE SCLEROSIS
     Dosage: 0.5 MG, QD
     Route: 048
     Dates: start: 20120921, end: 20130422
  2. LORAZEPAM [Concomitant]
     Indication: ANXIETY
     Dosage: 0.5 MG, TID
     Route: 048
     Dates: start: 20080924
  3. BACLOFEN [Concomitant]
     Indication: MUSCLE SPASMS
     Dosage: 10 MG, TID
     Route: 048
     Dates: start: 20060524
  4. LOSARTAN POTASSIUM AND HYDROCHLOROTHIAZIDE [Concomitant]
     Indication: HYPERTENSION
     Dosage: 50/12.5 MG, QD
     Route: 048
     Dates: start: 20110525
  5. LYRICA [Concomitant]
     Indication: HYPOAESTHESIA
     Dosage: 75 MG, BID
     Route: 048
     Dates: start: 20091009
  6. FISH OIL [Concomitant]
     Indication: MEDICAL DIET
     Dosage: 1000 MG, BID
     Route: 048
     Dates: start: 20080422

REACTIONS (1)
  - Histoplasmosis cutaneous [Not Recovered/Not Resolved]
